FAERS Safety Report 9517423 (Version 2)
Quarter: 2013Q3

REPORT INFORMATION
  Report Type: Spontaneous
  Country: JP (occurrence: JP)
  Receive Date: 20130911
  Receipt Date: 20130927
  Transmission Date: 20140515
  Serious: Yes (Hospitalization)
  Sender: FDA-Public Use
  Company Number: JP-SANOFI-AVENTIS-2013SA090380

PATIENT
  Age: 76 Year
  Sex: Male

DRUGS (7)
  1. MYSLEE [Suspect]
     Indication: PRODUCT USED FOR UNKNOWN INDICATION
     Route: 048
  2. WARFARIN [Suspect]
     Indication: PRODUCT USED FOR UNKNOWN INDICATION
     Route: 048
  3. URINORM [Suspect]
     Indication: PRODUCT USED FOR UNKNOWN INDICATION
     Route: 048
  4. ADALAT [Concomitant]
     Route: 048
  5. SOLANAX [Concomitant]
     Route: 048
  6. PRAZAXA [Concomitant]
     Route: 048
  7. PURSENNID [Concomitant]

REACTIONS (1)
  - Tubulointerstitial nephritis [Not Recovered/Not Resolved]
